FAERS Safety Report 9095694 (Version 1)
Quarter: 2013Q1

REPORT INFORMATION
  Report Type: Spontaneous
  Country: SE (occurrence: None)
  Receive Date: 20130124
  Receipt Date: 20130124
  Transmission Date: 20140127
  Serious: Yes (Hospitalization, Disabling)
  Sender: FDA-Public Use
  Company Number: DSA_62022_2013

PATIENT
  Sex: Male

DRUGS (1)
  1. VOXRA [Suspect]
     Dates: start: 201211

REACTIONS (3)
  - Musculoskeletal stiffness [None]
  - Hypoaesthesia [None]
  - Myalgia [None]
